FAERS Safety Report 5230510-9 (Version None)
Quarter: 2007Q1

REPORT INFORMATION
  Report Type: 
  Country: None (occurrence: None)
  Receive Date: 20070202
  Receipt Date: 20070126
  Transmission Date: 20070707
  Serious: Yes (Other)
  Sender: FDA-Public Use
  Company Number: 2007SP001679

PATIENT
  Sex: Female

DRUGS (7)
  1. TEMODAL [Suspect]
     Indication: GLIOBLASTOMA
     Dosage: PO
     Route: 048
     Dates: end: 20061101
  2. FRAXIPARIN /00889603/ [Concomitant]
  3. NEXIUM [Concomitant]
  4. FORTECORTIN /00016001/ [Concomitant]
  5. FENISTIL [Concomitant]
  6. ACT [Concomitant]
  7. BETA BLOCKER [Concomitant]

REACTIONS (1)
  - HEPATITIS TOXIC [None]
